FAERS Safety Report 8968027 (Version 1)
Quarter: 2012Q4

REPORT INFORMATION
  Report Type: Spontaneous
  Country: US (occurrence: None)
  Receive Date: 20121214
  Receipt Date: 20121214
  Transmission Date: 20130627
  Serious: No
  Sender: FDA-Public Use
  Company Number: None

PATIENT
  Age: 67 Year
  Weight: 83.92 kg

DRUGS (1)
  1. CLOPIDOGREL [Suspect]
     Indication: PRODUCT SUBSTITUTION ISSUE
     Dosage: 75mg 1 a day mouth
     Route: 048

REACTIONS (1)
  - Rash [None]
